FAERS Safety Report 6098203-6 (Version None)
Quarter: 2009Q1

REPORT INFORMATION
  Report Type: 
  Country: None (occurrence: None)
  Receive Date: 20090227
  Receipt Date: 20090224
  Transmission Date: 20090719
  Serious: Yes (Life-Threatening, Hospitalization)
  Sender: FDA-Public Use
  Company Number: FR-ASTRAZENECA-2008CG00750

PATIENT
  Age: 64 Year
  Sex: Male
  Weight: 78 kg

DRUGS (15)
  1. MOPRAL [Suspect]
     Indication: PROPHYLAXIS
     Route: 048
     Dates: end: 20070101
  2. MOPRAL [Suspect]
     Indication: ABDOMINAL PAIN UPPER
     Route: 048
     Dates: end: 20070101
  3. MOPRAL [Suspect]
     Route: 048
     Dates: start: 20080213, end: 20080201
  4. MOPRAL [Suspect]
     Route: 048
     Dates: start: 20080213, end: 20080201
  5. MOPRAL [Suspect]
     Route: 048
     Dates: start: 20080229, end: 20080301
  6. MOPRAL [Suspect]
     Route: 048
     Dates: start: 20080229, end: 20080301
  7. DIAMICRON [Concomitant]
     Indication: DIABETES MELLITUS
     Route: 048
  8. LODOZ [Concomitant]
     Indication: HYPERTENSION
     Dates: start: 20060101
  9. PRAVASTATIN [Concomitant]
     Indication: HYPERCHOLESTEROLAEMIA
  10. METFORMIN [Concomitant]
     Indication: DIABETES MELLITUS
  11. PYOSTACINE [Concomitant]
     Dates: start: 20070101
  12. VANCOMYCIN HCL [Concomitant]
     Dates: start: 20070101
  13. CIFLOX [Concomitant]
     Dates: start: 20070101
  14. RIFAMPICIN [Concomitant]
     Dates: start: 20070101
  15. PREVISCAN [Concomitant]
     Indication: DEEP VEIN THROMBOSIS
     Dates: start: 20070101

REACTIONS (1)
  - ACUTE GENERALISED EXANTHEMATOUS PUSTULOSIS [None]
